FAERS Safety Report 14142013 (Version 4)
Quarter: 2017Q4

REPORT INFORMATION
  Report Type: Spontaneous
  Country: TR (occurrence: TR)
  Receive Date: 20171030
  Receipt Date: 20171208
  Transmission Date: 20180321
  Serious: Yes (Other)
  Sender: FDA-Public Use
  Company Number: TR-PFIZER INC-2017437696

PATIENT
  Age: 75 Year
  Sex: Male

DRUGS (1)
  1. XALATAN [Suspect]
     Active Substance: LATANOPROST
     Indication: GLAUCOMA
     Dosage: UNK
     Dates: start: 2014

REACTIONS (12)
  - Foreign body sensation in eyes [Recovering/Resolving]
  - Eye infection [Recovering/Resolving]
  - Eye irritation [Recovering/Resolving]
  - Eye swelling [Unknown]
  - Hypertension [Unknown]
  - Eye pruritus [Not Recovered/Not Resolved]
  - Photophobia [Unknown]
  - Ocular hyperaemia [Not Recovered/Not Resolved]
  - Eye pain [Recovering/Resolving]
  - Expired product administered [Unknown]
  - Visual impairment [Unknown]
  - Lacrimation increased [Recovering/Resolving]

NARRATIVE: CASE EVENT DATE: 2017
